FAERS Safety Report 8953381 (Version 4)
Quarter: 2013Q1

REPORT INFORMATION
  Report Type: Spontaneous
  Country: US (occurrence: US)
  Receive Date: 20121206
  Receipt Date: 20130307
  Transmission Date: 20140127
  Serious: Yes (Hospitalization, Other)
  Sender: FDA-Public Use
  Company Number: US-COVIDIEN/TYCO HEALTHCARE/MALLINCKRODT-T201204218

PATIENT
  Age: 40 None
  Sex: Male

DRUGS (7)
  1. FENTANYL CITRATE [Suspect]
     Indication: CANCER PAIN
     Dosage: 1200 MCG EVERY 4 HOURS
  2. FENTANYL CITRATE [Suspect]
     Dosage: 800 MCG Q 4-6 HRS
  3. FENTANYL CITRATE [Suspect]
     Dosage: 400 MCG Q 4-6 HRS
  4. MORPHINE SULFATE [Concomitant]
     Indication: PAIN
     Dosage: 100 MG BID
     Route: 048
  5. HYDROMORPHONE [Concomitant]
     Indication: PAIN
     Dosage: TWO 8 MG TABS Q 6 HRS
     Route: 048
  6. DIAZEPAM [Concomitant]
     Indication: MUSCLE SPASMS
     Dosage: TWO 10 MG TABS TID
     Route: 048
  7. THC [Concomitant]
     Dosage: INJECTION IN LEG

REACTIONS (13)
  - Cardiac failure [Unknown]
  - Myocardial infarction [Recovering/Resolving]
  - Brain oedema [Unknown]
  - Sensory loss [Unknown]
  - Abasia [Unknown]
  - Drug withdrawal syndrome [Recovering/Resolving]
  - Haematemesis [Recovering/Resolving]
  - Gastrointestinal haemorrhage [Recovering/Resolving]
  - Deafness [Unknown]
  - Hypertension [Unknown]
  - Anxiety [Unknown]
  - Muscle spasms [Unknown]
  - Pallor [Recovering/Resolving]
